FAERS Safety Report 8928676 (Version 1)
Quarter: 2012Q4

REPORT INFORMATION
  Report Type: Report from Study
  Country: US (occurrence: US)
  Receive Date: 20121128
  Receipt Date: 20121128
  Transmission Date: 20130627
  Serious: Yes (Other)
  Sender: FDA-Public Use
  Company Number: US-ASTELLAS-2012US011435

PATIENT
  Sex: Female

DRUGS (1)
  1. ERLOTINIB TABLET [Suspect]
     Indication: PULMONARY APLASIA
     Dosage: 50 mg, UID/QD
     Route: 048

REACTIONS (3)
  - Off label use [Unknown]
  - Lung neoplasm [Unknown]
  - Weight decreased [Unknown]
